FAERS Safety Report 5241697-6 (Version None)
Quarter: 2007Q1

REPORT INFORMATION
  Report Type: 
  Country: None (occurrence: None)
  Receive Date: 20070212
  Receipt Date: 20070126
  Transmission Date: 20070707
  Serious: Yes (Other)
  Sender: FDA-Public Use
  Company Number: DSA_29072_2006

PATIENT
  Sex: Female
  Weight: 90.7194 kg

DRUGS (9)
  1. VASOTEC [Suspect]
     Indication: HYPERTENSION
     Dosage: 5 MG BID PO
     Route: 048
     Dates: start: 19910101, end: 20060824
  2. PLAVIX [Concomitant]
  3. LIPITOR [Concomitant]
  4. ZETIA [Concomitant]
  5. COREG [Concomitant]
  6. CLARITIN [Concomitant]
  7. PERCOCET [Concomitant]
  8. ASPIRIN [Concomitant]
  9. NIASPAN [Concomitant]

REACTIONS (7)
  - ACUTE MYOCARDIAL INFARCTION [None]
  - CERVICOBRACHIAL SYNDROME [None]
  - COUGH [None]
  - MYOCARDIAL ISCHAEMIA [None]
  - NASOPHARYNGITIS [None]
  - NO THERAPEUTIC RESPONSE [None]
  - SELF-MEDICATION [None]
